FAERS Safety Report 7780618-9 (Version None)
Quarter: 2011Q3

REPORT INFORMATION
  Report Type: 
  Country: None (occurrence: None)
  Receive Date: 20110927
  Receipt Date: 20101029
  Transmission Date: 20111222
  Serious: No
  Sender: FDA-Public Use
  Company Number: US-BRISTOL-MYERS SQUIBB COMPANY-15360209

PATIENT
  Age: 75 Year
  Sex: Female
  Weight: 84 kg

DRUGS (3)
  1. ASPIRIN [Concomitant]
  2. XANAX [Concomitant]
  3. AVAPRO [Suspect]

REACTIONS (3)
  - CHILLS [None]
  - PAIN IN EXTREMITY [None]
  - PANIC ATTACK [None]
